FAERS Safety Report 6402593-1 (Version None)
Quarter: 2009Q4

REPORT INFORMATION
  Report Type: 
  Country: None (occurrence: None)
  Receive Date: 20091009
  Receipt Date: 20090930
  Transmission Date: 20100525
  Serious: Yes (Other)
  Sender: FDA-Public Use
  Company Number: ADR34792009

PATIENT
  Age: 52 Year
  Sex: Male

DRUGS (2)
  1. CIPROFLOXACIN [Suspect]
     Indication: OTITIS MEDIA
     Dosage: 500 MG, ORAL
     Route: 048
     Dates: start: 20061208, end: 20061210
  2. QUININE [Concomitant]

REACTIONS (2)
  - CONDITION AGGRAVATED [None]
  - MOTOR NEURONE DISEASE [None]
